FAERS Safety Report 23673585 (Version 1)
Quarter: 2024Q1

REPORT INFORMATION
  Report Type: Other
  Country: US (occurrence: US)
  Receive Date: 20240326
  Receipt Date: 20240326
  Transmission Date: 20240410
  Serious: Yes (Hospitalization)
  Sender: FDA-Public Use
  Company Number: US-OrBion Pharmaceuticals Private Limited-2154842

PATIENT
  Age: 32 Year
  Sex: Female

DRUGS (1)
  1. DIVALPROEX SODIUM [Suspect]
     Active Substance: DIVALPROEX SODIUM
     Indication: Seizure cluster
     Route: 065

REACTIONS (2)
  - Eosinophilic pleural effusion [Recovered/Resolved]
  - Anticonvulsant drug level above therapeutic [Unknown]
